FAERS Safety Report 20573643 (Version 2)
Quarter: 2022Q2

REPORT INFORMATION
  Report Type: Spontaneous
  Country: DE (occurrence: DE)
  Receive Date: 20220309
  Receipt Date: 20220418
  Transmission Date: 20220721
  Serious: Yes (Other)
  Sender: FDA-Public Use
  Company Number: DE-ANIPHARMA-2022-DE-000027

PATIENT
  Age: 82 Year
  Sex: Female

DRUGS (4)
  1. CANDESARTAN CILEXETIL [Suspect]
     Active Substance: CANDESARTAN CILEXETIL
     Indication: Product used for unknown indication
     Route: 065
  2. TORSEMIDE [Suspect]
     Active Substance: TORSEMIDE
     Route: 065
  3. METOPROLOL [Suspect]
     Active Substance: METOPROLOL
     Route: 065
  4. AMLODIPINE BESYLATE [Suspect]
     Active Substance: AMLODIPINE BESYLATE
     Dosage: 1 DF UNK
     Route: 065

REACTIONS (7)
  - Spinal stenosis [Not Recovered/Not Resolved]
  - Bone disorder [Unknown]
  - Hypertension [Unknown]
  - Muscular weakness [Unknown]
  - Osteoarthritis [Unknown]
  - Blood calcium increased [Unknown]
  - Neuropathy peripheral [Unknown]
